FAERS Safety Report 9576313 (Version 1)
Quarter: 2013Q4

REPORT INFORMATION
  Report Type: Spontaneous
  Country: US (occurrence: US)
  Receive Date: 20131001
  Receipt Date: 20131001
  Transmission Date: 20140711
  Serious: No
  Sender: FDA-Public Use
  Company Number: US-AMGEN-USASP2013002388

PATIENT
  Sex: Female
  Weight: 77.1 kg

DRUGS (3)
  1. ENBREL [Suspect]
     Indication: PSORIASIS
     Dosage: 50 MG, TWICE A WEEK
     Route: 058
  2. LIPITOR [Concomitant]
     Dosage: 10 MG, UNK
  3. CELEXA                             /01400501/ [Concomitant]
     Dosage: 10 MG, UNK

REACTIONS (1)
  - Therapeutic response decreased [Unknown]
